FAERS Safety Report 22227764 (Version 1)
Quarter: 2023Q2

REPORT INFORMATION
  Report Type: Spontaneous
  Country: GB (occurrence: GB)
  Receive Date: 20230419
  Receipt Date: 20230419
  Transmission Date: 20230721
  Serious: Yes (Other)
  Sender: FDA-Public Use
  Company Number: None

PATIENT
  Age: 27 Year
  Sex: Female
  Weight: 106 kg

DRUGS (10)
  1. AMOXICILLIN [Suspect]
     Active Substance: AMOXICILLIN
     Indication: Ill-defined disorder
     Dates: start: 20230404
  2. AMOXICILLIN [Suspect]
     Active Substance: AMOXICILLIN
     Dosage: TAKE 10ML THREE TIMES A DAY FOR 7 DAYS, TO TREAT INFECTION
     Dates: start: 20230404, end: 20230404
  3. CITALOPRAM. [Concomitant]
     Indication: Anxiety
     Dosage: ONE TABLET IN THE MORNING FOR ANXIETY / DEPRESS...
     Dates: start: 20210616
  4. CITALOPRAM. [Concomitant]
     Indication: Depression
  5. CLARITHROMYCIN [Concomitant]
     Active Substance: CLARITHROMYCIN
     Indication: Ill-defined disorder
     Dosage: TAKE ONE TABLET TWICE A DAY FOR 5 DAYS, TO TREA...
     Dates: start: 20230404
  6. DESOGESTREL [Concomitant]
     Active Substance: DESOGESTREL
     Indication: Ill-defined disorder
     Dosage: TAKE ONE TABLET DAILY AT THE SAME TIME EACH DAY.
     Dates: start: 20210616
  7. FERROUS FUMARATE [Concomitant]
     Active Substance: FERROUS FUMARATE
     Indication: Anaemia
     Dosage: ONE TABLET THREE TIMES DAILY TO PREVENT ANAEMIA
     Dates: start: 20210616, end: 20230125
  8. FUSIDIC ACID [Concomitant]
     Active Substance: FUSIDIC ACID
     Indication: Ill-defined disorder
     Dosage: APPLY THREE TIMES A DAY
     Dates: start: 20230112, end: 20230119
  9. LANSOPRAZOLE [Concomitant]
     Active Substance: LANSOPRAZOLE
     Indication: Ill-defined disorder
     Dosage: TAKE ONE ONCE DAILY
     Dates: start: 20230116, end: 20230213
  10. OMEPRAZOLE [Concomitant]
     Active Substance: OMEPRAZOLE
     Indication: Ill-defined disorder
     Dosage: ONE CAPSULE DAILY FOR REFLUX
     Dates: start: 20210616

REACTIONS (1)
  - Pharyngeal swelling [Recovered/Resolved]

NARRATIVE: CASE EVENT DATE: 20230404
